FAERS Safety Report 7319411-X (Version None)
Quarter: 2011Q1

REPORT INFORMATION
  Report Type: 
  Country: None (occurrence: None)
  Receive Date: 20110228
  Receipt Date: 20100310
  Transmission Date: 20110831
  Serious: Yes (Other)
  Sender: FDA-Public Use
  Company Number: A0849489A

PATIENT
  Age: 62 Year
  Sex: Female

DRUGS (3)
  1. PHENOBARBITAL TAB [Concomitant]
  2. LAMICTAL [Suspect]
     Dosage: 200MG TWICE PER DAY
     Route: 048
     Dates: start: 20071001
  3. TEGRETOL [Concomitant]

REACTIONS (2)
  - CONVULSION [None]
  - RASH [None]
